FAERS Safety Report 22220095 (Version 2)
Quarter: 2023Q2

REPORT INFORMATION
  Report Type: Spontaneous
  Country: US (occurrence: US)
  Receive Date: 20230417
  Receipt Date: 20230525
  Transmission Date: 20230722
  Serious: Yes (Other)
  Sender: FDA-Public Use
  Company Number: US-AMERICAN REGENT INC-2023000921

PATIENT
  Age: 74 Year
  Sex: Female

DRUGS (2)
  1. VENOFER [Suspect]
     Active Substance: IRON SUCROSE
     Indication: Anaemia
     Dosage: 100 MILLIGRAM
     Route: 042
     Dates: start: 202303, end: 202303
  2. SYNTHROID [Concomitant]
     Active Substance: LEVOTHYROXINE SODIUM
     Indication: Product used for unknown indication
     Dosage: HIGH DOSE
     Route: 065
     Dates: end: 202305

REACTIONS (12)
  - Eye pain [Unknown]
  - Peripheral vascular disorder [Unknown]
  - Condition aggravated [Unknown]
  - Tachycardia [Unknown]
  - Syncope [Unknown]
  - Chest pain [Unknown]
  - Headache [Unknown]
  - Arthralgia [Unknown]
  - Oedema peripheral [Unknown]
  - Product use in unapproved indication [Unknown]
  - Off label use [Unknown]
  - Therapeutic response unexpected [Unknown]

NARRATIVE: CASE EVENT DATE: 20230101
